FAERS Safety Report 13564366 (Version 2)
Quarter: 2017Q2

REPORT INFORMATION
  Report Type: Spontaneous
  Country: US (occurrence: US)
  Receive Date: 20170519
  Receipt Date: 20170522
  Transmission Date: 20170830
  Serious: No
  Sender: FDA-Public Use
  Company Number: US-PFIZER INC-2017215342

PATIENT
  Age: 44 Year
  Sex: Female
  Weight: 90.72 kg

DRUGS (3)
  1. ZOLOFT [Concomitant]
     Active Substance: SERTRALINE HYDROCHLORIDE
     Indication: NERVOUSNESS
     Dosage: 50 MG, 1X/DAY (50MG TABLET ONE AT NIGHT)
     Route: 048
  2. ZOLOFT [Concomitant]
     Active Substance: SERTRALINE HYDROCHLORIDE
     Indication: SLEEP DISORDER
  3. LYRICA [Suspect]
     Active Substance: PREGABALIN
     Indication: FIBROMYALGIA
     Dosage: 300 MG, 1X/DAY

REACTIONS (12)
  - Intentional product use issue [Unknown]
  - Back pain [Not Recovered/Not Resolved]
  - Weight increased [Unknown]
  - Prescribed overdose [Unknown]
  - Pain in extremity [Unknown]
  - Hunger [Unknown]
  - Influenza like illness [Not Recovered/Not Resolved]
  - Condition aggravated [Not Recovered/Not Resolved]
  - Pain [Not Recovered/Not Resolved]
  - Musculoskeletal pain [Not Recovered/Not Resolved]
  - Fibromyalgia [Not Recovered/Not Resolved]
  - Disturbance in attention [Not Recovered/Not Resolved]

NARRATIVE: CASE EVENT DATE: 201704
